FAERS Safety Report 11085428 (Version 2)
Quarter: 2015Q2

REPORT INFORMATION
  Report Type: Spontaneous
  Country: US (occurrence: US)
  Receive Date: 20150503
  Receipt Date: 20150525
  Transmission Date: 20150821
  Serious: No
  Sender: FDA-Public Use
  Company Number: US-JNJFOC-20130717094

PATIENT
  Sex: Female
  Weight: 49.44 kg

DRUGS (2)
  1. ORTHO EVRA [Suspect]
     Active Substance: ETHINYL ESTRADIOL\NORELGESTROMIN
     Indication: PRODUCT USED FOR UNKNOWN INDICATION
     Route: 062
     Dates: start: 201304
  2. UNSPECIFIED ALLERGY MEDICATIONS [Concomitant]
     Route: 065
     Dates: start: 201303

REACTIONS (3)
  - Abdominal pain upper [Recovered/Resolved]
  - Product adhesion issue [Recovered/Resolved]
  - Wrong technique in drug usage process [Recovered/Resolved]

NARRATIVE: CASE EVENT DATE: 2013
